FAERS Safety Report 5109931-0 (Version None)
Quarter: 2006Q3

REPORT INFORMATION
  Report Type: 
  Country: None (occurrence: None)
  Receive Date: 20060921
  Receipt Date: 20060912
  Transmission Date: 20061208
  Serious: Yes (Life-Threatening)
  Sender: FDA-Public Use
  Company Number: IE-BAYER-200611120BNE

PATIENT
  Age: 83 Year
  Sex: Female

DRUGS (7)
  1. AVELOX [Suspect]
     Route: 048
     Dates: start: 20060904, end: 20060904
  2. CORDARONE [Concomitant]
     Route: 048
  3. WARFARIN [Concomitant]
  4. FUROSEMIDE [Concomitant]
     Route: 048
  5. TRITACE [Concomitant]
     Route: 048
  6. ASPIRIN [Concomitant]
     Route: 048
  7. LIPITOR [Concomitant]
     Route: 048

REACTIONS (6)
  - CONVULSION [None]
  - DYSKINESIA [None]
  - EYE ROLLING [None]
  - LOSS OF CONSCIOUSNESS [None]
  - TONIC CLONIC MOVEMENTS [None]
  - VOMITING [None]
